FAERS Safety Report 12959401 (Version 10)
Quarter: 2017Q3

REPORT INFORMATION
  Report Type: Spontaneous
  Country: US (occurrence: US)
  Receive Date: 20161121
  Receipt Date: 20170712
  Transmission Date: 20171127
  Serious: Yes (Congenital Anomaly, Other)
  Sender: FDA-Public Use
  Company Number: PHEH2016US030200

PATIENT
  Sex: Male

DRUGS (2)
  1. ONDANSETRON HYDROCHLORIDE. [Suspect]
     Active Substance: ONDANSETRON HYDROCHLORIDE
     Indication: FOETAL EXPOSURE DURING PREGNANCY
     Route: 064
  2. ZOFRAN [Suspect]
     Active Substance: ONDANSETRON HYDROCHLORIDE
     Indication: FOETAL EXPOSURE DURING PREGNANCY
     Route: 064

REACTIONS (55)
  - Transposition of the great vessels [Unknown]
  - Cyanosis [Unknown]
  - Tricuspid valve incompetence [Unknown]
  - Ventricular extrasystoles [Unknown]
  - Pallor [Unknown]
  - Neonatal hypocalcaemia [Unknown]
  - Painful respiration [Unknown]
  - Pyrexia [Unknown]
  - Tricuspid valve disease [Unknown]
  - Hypoxia [Unknown]
  - Pharyngitis [Unknown]
  - Hypomagnesaemia [Unknown]
  - Upper respiratory tract infection [Unknown]
  - Hypovolaemia [Unknown]
  - Palpitations [Recovered/Resolved]
  - Jaundice neonatal [Unknown]
  - Tachycardia [Unknown]
  - Fatigue [Unknown]
  - Headache [Unknown]
  - Atrial septal defect [Unknown]
  - Neonatal tachypnoea [Unknown]
  - Right ventricular dilatation [Unknown]
  - Injury [Unknown]
  - Pain [Unknown]
  - Cardiac murmur [Unknown]
  - Gastrooesophageal reflux disease [Recovered/Resolved]
  - Patent ductus arteriosus [Unknown]
  - Right aortic arch [Unknown]
  - Bronchiolitis [Unknown]
  - Pulmonary hypertension [Unknown]
  - Right ventricle outflow tract obstruction [Unknown]
  - Pulmonary valve incompetence [Unknown]
  - Thrombocytopenia neonatal [Unknown]
  - Anhedonia [Unknown]
  - Foetal macrosomia [Unknown]
  - Anxiety [Unknown]
  - Constipation [Unknown]
  - Congenital anomaly [Unknown]
  - Fallot^s tetralogy [Unknown]
  - Pneumonia [Unknown]
  - Otitis media [Unknown]
  - Syncope [Recovered/Resolved]
  - Dyspnoea [Unknown]
  - Chest pain [Recovered/Resolved]
  - Heart disease congenital [Unknown]
  - Ventricular septal defect [Recovered/Resolved]
  - Pulmonary valve stenosis congenital [Unknown]
  - Foetal exposure during pregnancy [Unknown]
  - Neonatal respiratory failure [Unknown]
  - Pericarditis adhesive [Unknown]
  - Emotional distress [Unknown]
  - Gastroenteritis [Unknown]
  - Chest discomfort [Unknown]
  - Lung hyperinflation [Unknown]
  - Dental caries [Unknown]
